FAERS Safety Report 7337446-8 (Version None)
Quarter: 2011Q1

REPORT INFORMATION
  Report Type: 
  Country: None (occurrence: None)
  Receive Date: 20110224
  Receipt Date: 20110216
  Transmission Date: 20110831
  Serious: Yes (Hospitalization, Other)
  Sender: FDA-Public Use
  Company Number: 2010SP064419

PATIENT
  Age: 34 Year
  Sex: Female
  Weight: 95.2554 kg

DRUGS (2)
  1. NUVARING [Suspect]
     Indication: MENORRHAGIA
     Dates: start: 20080101, end: 20091201
  2. NUVARING [Suspect]
     Indication: CONTRACEPTION
     Dates: start: 20080101, end: 20091201

REACTIONS (22)
  - PANIC ATTACK [None]
  - OVARIAN CYST [None]
  - THROMBOSIS [None]
  - HAEMOPTYSIS [None]
  - DYSFUNCTIONAL UTERINE BLEEDING [None]
  - DIZZINESS [None]
  - ADENOMYOSIS [None]
  - CONSTIPATION [None]
  - HYPOAESTHESIA [None]
  - MIGRAINE [None]
  - WEIGHT INCREASED [None]
  - LEIOMYOMA [None]
  - ENDOMETRIOSIS [None]
  - EMOTIONAL DISTRESS [None]
  - PULMONARY EMBOLISM [None]
  - CERVICAL CYST [None]
  - MULTIPLE INJURIES [None]
  - MENTAL STATUS CHANGES [None]
  - HEADACHE [None]
  - THANATOPHOBIA [None]
  - RESPIRATORY ALKALOSIS [None]
  - FATIGUE [None]
